FAERS Safety Report 4296573-2 (Version None)
Quarter: 2004Q1

REPORT INFORMATION
  Report Type: 
  Country: None (occurrence: None)
  Receive Date: 20040217
  Receipt Date: 20040212
  Transmission Date: 20041129
  Serious: Yes (Death)
  Sender: FDA-Public Use
  Company Number: US-GLAXOSMITHKLINE-A0498022A

PATIENT
  Age: 24 Year
  Sex: Male

DRUGS (2)
  1. PAXIL [Suspect]
     Indication: BIPOLAR DISORDER
     Dosage: 20MG PER DAY
     Route: 048
     Dates: start: 19951001, end: 19960901
  2. BUSPAR [Concomitant]

REACTIONS (1)
  - COMPLETED SUICIDE [None]
